FAERS Safety Report 4942659-6 (Version None)
Quarter: 2006Q1

REPORT INFORMATION
  Report Type: 
  Country: None (occurrence: None)
  Receive Date: 20060309
  Receipt Date: 20060227
  Transmission Date: 20060701
  Serious: Yes (Other)
  Sender: FDA-Public Use
  Company Number: 2006022782

PATIENT
  Age: 47 Year
  Sex: Female

DRUGS (4)
  1. LYRICA [Suspect]
     Indication: POLYNEUROPATHY
     Dosage: 150 MG (75 MG, 2 IN 1 D), ORAL
     Route: 048
     Dates: start: 20050205, end: 20060201
  2. AMITRIPTYLINE HCL [Suspect]
     Indication: POLYNEUROPATHY
     Dosage: 25 MG (25 MG, 1 IN 1 D),ORAL
     Route: 048
  3. TRAMADOL HCL [Concomitant]
  4. RAMIPRIL [Concomitant]

REACTIONS (2)
  - DERMATITIS ALLERGIC [None]
  - PHOTOSENSITIVITY REACTION [None]
